FAERS Safety Report 8229709-9 (Version None)
Quarter: 2012Q1

REPORT INFORMATION
  Report Type: 
  Country: None (occurrence: None)
  Receive Date: 20120322
  Receipt Date: 20120320
  Transmission Date: 20120608
  Serious: Yes (Death, Hospitalization)
  Sender: FDA-Public Use
  Company Number: US-ABBOTT-09P-163-0568435-00

PATIENT
  Sex: Female
  Weight: 48 kg

DRUGS (15)
  1. PREVACID [Concomitant]
     Indication: PRODUCT USED FOR UNKNOWN INDICATION
     Dates: start: 20030703
  2. MONTELUKAST [Concomitant]
     Indication: PRODUCT USED FOR UNKNOWN INDICATION
     Dates: start: 20030703
  3. MOTRIN [Concomitant]
     Indication: PRODUCT USED FOR UNKNOWN INDICATION
     Dates: start: 20030705
  4. LEVOTHYROXINE SODIUM [Suspect]
     Indication: HYPOTHYROIDISM
     Route: 048
     Dates: start: 20050531
  5. EUCERIN [Concomitant]
     Indication: PRODUCT USED FOR UNKNOWN INDICATION
     Dates: start: 20041007
  6. SUNITINIB MALATE [Interacting]
     Indication: GASTROINTESTINAL STROMAL TUMOUR
     Dosage: 4 WEEKS ON 2 WEEKS OFF
     Route: 048
     Dates: start: 20040716, end: 20050702
  7. TYLENOL PM [Suspect]
     Indication: INSOMNIA
     Route: 048
     Dates: start: 20040903
  8. ALBUTEROL [Concomitant]
     Indication: PRODUCT USED FOR UNKNOWN INDICATION
     Dates: start: 20030703
  9. LEVOTHYROXINE SODIUM [Suspect]
  10. LEVOTHYROXINE SODIUM [Suspect]
  11. ACETAMINOPHEN [Suspect]
     Indication: HEADACHE
     Dosage: 2 G/WK ON AVERAGE, PLUS 500 MG PER NIGHT
     Route: 048
     Dates: start: 20040903
  12. ACETAMINOPHEN [Suspect]
     Indication: INSOMNIA
  13. ZANTAC [Concomitant]
     Indication: PRODUCT USED FOR UNKNOWN INDICATION
     Dates: start: 20040715
  14. ZYRTEC [Concomitant]
     Indication: PRODUCT USED FOR UNKNOWN INDICATION
     Dates: start: 20030703
  15. MEGACE [Concomitant]
     Indication: PRODUCT USED FOR UNKNOWN INDICATION
     Dates: start: 20041216

REACTIONS (2)
  - DRUG INTERACTION [None]
  - HEPATIC FAILURE [None]
